FAERS Safety Report 16583742 (Version 1)
Quarter: 2019Q3

REPORT INFORMATION
  Report Type: Spontaneous
  Country: DE (occurrence: DE)
  Receive Date: 20190717
  Receipt Date: 20190717
  Transmission Date: 20191004
  Serious: Yes (Hospitalization)
  Sender: FDA-Public Use
  Company Number: DE-TEVA-2019-DE-1078055

PATIENT
  Age: 62 Year
  Sex: Female
  Weight: 59 kg

DRUGS (7)
  1. FLUOROURACIL. [Suspect]
     Active Substance: FLUOROURACIL
     Dosage: 2000 MG/M2, BY SCHEME, LAST 13.11.2017, SOLUTION FOR INJECTION/INFUSION
     Route: 042
  2. LYRICA [Concomitant]
     Active Substance: PREGABALIN
     Dosage: 100 MG, 1-0-1-0, TABLETS
     Route: 048
  3. SPIRONOLACTON [Concomitant]
     Active Substance: SPIRONOLACTONE
     Dosage: 50 MG, 1-0-0-0, TABLETS
     Route: 048
  4. CALCIUM LEVOFOLINATE [Suspect]
     Active Substance: LEVOLEUCOVORIN CALCIUM
     Dosage: 500 MG/M2, BY SCHEME, LAST 20.11.2017, SOLUTION FOR INJECTION/INFUSION
     Route: 042
  5. NOVALGIN [Concomitant]
     Dosage: 500 MG, 1-0-0-1, TABLETS
     Route: 048
  6. TOREM 10 [Concomitant]
     Active Substance: TORSEMIDE
     Dosage: 10 MG, 1-0-0-0, TABLETS
     Route: 048
  7. CISPLATIN. [Suspect]
     Active Substance: CISPLATIN
     Dosage: 50 MG/M2, BY SCHEME, LAST 13.11.2017, SOLUTION FOR INJECTION/INFUSION
     Route: 042

REACTIONS (3)
  - Chills [Unknown]
  - Systemic infection [Unknown]
  - Pyrexia [Unknown]
